FAERS Safety Report 4309822-9 (Version None)
Quarter: 2004Q1

REPORT INFORMATION
  Report Type: 
  Country: None (occurrence: None)
  Receive Date: 20040301
  Receipt Date: 20031218
  Transmission Date: 20041129
  Serious: Yes (Death)
  Sender: FDA-Public Use
  Company Number: 1502

PATIENT
  Age: 45 Year
  Sex: Female

DRUGS (4)
  1. AVINZA [Suspect]
     Indication: BACK PAIN
     Dosage: 120 MG QD PO
     Route: 048
     Dates: start: 20031001, end: 20031001
  2. ALPRAZOLAM [Concomitant]
  3. UNSPECIFIED ANTIDEPRESSANT [Concomitant]
  4. UNSPECIFIED ANTIPSYCHOTIC [Concomitant]

REACTIONS (1)
  - OVERDOSE [None]
